FAERS Safety Report 16151791 (Version 1)
Quarter: 2019Q2

REPORT INFORMATION
  Report Type: Spontaneous
  Country: US (occurrence: US)
  Receive Date: 20190228
  Receipt Date: 20190228
  Transmission Date: 20190711
  Serious: No
  Sender: FDA-Public Use
  Company Number: None

PATIENT
  Age: 73 Year
  Sex: Female
  Weight: 68.04 kg

DRUGS (1)
  1. CHLOESTRAYMIN W.SUC PW PK 9GM-4GM [Suspect]
     Active Substance: CHOLESTYRAMINE
     Indication: HYPERLIPIDAEMIA
     Dates: start: 20170201

REACTIONS (2)
  - Dysphagia [None]
  - Foreign body in respiratory tract [None]

NARRATIVE: CASE EVENT DATE: 20190221
